FAERS Safety Report 7111727-5 (Version None)
Quarter: 2010Q4

REPORT INFORMATION
  Report Type: 
  Country: None (occurrence: None)
  Receive Date: 20101118
  Receipt Date: 20101115
  Transmission Date: 20110411
  Serious: Yes (Hospitalization)
  Sender: FDA-Public Use
  Company Number: FR-MERCK-1011FRA00059

PATIENT
  Age: 54 Year
  Sex: Female

DRUGS (9)
  1. PRIMAXIN [Suspect]
     Route: 042
     Dates: start: 20101002, end: 20101008
  2. ERYTHROMYCIN STEARATE [Suspect]
     Route: 042
     Dates: start: 20101001, end: 20101001
  3. ERYTHROMYCIN STEARATE [Suspect]
     Route: 042
     Dates: start: 20101003, end: 20101004
  4. PROPOFOL [Suspect]
     Route: 042
     Dates: start: 20101003, end: 20101003
  5. PROPOFOL [Suspect]
     Route: 042
     Dates: start: 20100913, end: 20100913
  6. PROPOFOL [Suspect]
     Route: 042
     Dates: start: 20100925, end: 20100925
  7. PROPOFOL [Suspect]
     Route: 042
     Dates: start: 20100927, end: 20100928
  8. AMLODIPINE [Concomitant]
     Indication: HYPERTENSION
     Route: 065
  9. ROSUVASTATIN CALCIUM [Concomitant]
     Indication: HYPERCHOLESTEROLAEMIA
     Route: 065

REACTIONS (1)
  - HEPATITIS CHOLESTATIC [None]
